FAERS Safety Report 8565417-2 (Version None)
Quarter: 2012Q3

REPORT INFORMATION
  Report Type: 
  Country: None (occurrence: None)
  Receive Date: 20120803
  Receipt Date: 20120727
  Transmission Date: 20120928
  Serious: Yes (Other)
  Sender: FDA-Public Use
  Company Number: BR-PFIZER INC-2012173157

PATIENT
  Age: 77 Year
  Sex: Female

DRUGS (5)
  1. ATORVASTATIN CALCIUM [Suspect]
     Indication: BLOOD CHOLESTEROL INCREASED
     Dosage: 20 MG, 1 TABLET AT NIGHT
     Dates: start: 20110501
  2. ATORVASTATIN CALCIUM [Suspect]
     Indication: BLOOD CHOLESTEROL ABNORMAL
     Dosage: UNK MG, 1X/DAY
  3. SIMVASTATIN [Suspect]
     Dosage: UNK
  4. ATENOLOL [Concomitant]
     Indication: HYPERTENSION
     Dosage: 25 MG, DAILY
  5. LOSARTAN [Concomitant]
     Indication: HYPERTENSION
     Dosage: 50 MG IN THE MORNING AND 50 MG AT NIGHT
     Dates: start: 20090701

REACTIONS (10)
  - OEDEMA PERIPHERAL [None]
  - FORMICATION [None]
  - SOMNOLENCE [None]
  - DRUG INEFFECTIVE [None]
  - BACK PAIN [None]
  - DEPRESSION [None]
  - BLOOD CHOLESTEROL INCREASED [None]
  - PAIN IN EXTREMITY [None]
  - OSTEOARTHRITIS [None]
  - CATARACT [None]
